FAERS Safety Report 20728415 (Version 5)
Quarter: 2022Q2

REPORT INFORMATION
  Report Type: Report from Study
  Country: GR (occurrence: GR)
  Receive Date: 20220420
  Receipt Date: 20220615
  Transmission Date: 20220721
  Serious: Yes (Hospitalization)
  Sender: FDA-Public Use
  Company Number: GR-ABBVIE-22K-066-4359751-00

PATIENT
  Age: 75 Year
  Sex: Female
  Weight: 62 kg

DRUGS (11)
  1. CARBIDOPA\LEVODOPA [Suspect]
     Active Substance: CARBIDOPA\LEVODOPA
     Indication: Parkinson^s disease
     Dosage: MORNING DOSE: 11.5ML; CONTINUOUS RATE: 3.2ML/H; EXTRA DOSE: 1.3ML
     Route: 050
     Dates: start: 20220401
  2. CARBIDOPA\LEVODOPA [Suspect]
     Active Substance: CARBIDOPA\LEVODOPA
     Dosage: MORNING DOSE: 11.5ML; CONTINUOUS RATE: 3.2ML/H; EXTRA DOSE: 1.3ML
     Route: 050
  3. STALEVO [Concomitant]
     Active Substance: CARBIDOPA\ENTACAPONE\LEVODOPA
     Indication: Product used for unknown indication
     Route: 048
  4. XANAX [Concomitant]
     Active Substance: ALPRAZOLAM
     Indication: Product used for unknown indication
     Route: 048
  5. LEVOTHYROXINE [Concomitant]
     Active Substance: LEVOTHYROXINE
     Indication: Product used for unknown indication
     Route: 048
  6. LEVOTHYROXINE [Concomitant]
     Active Substance: LEVOTHYROXINE
     Route: 048
  7. LEXAPRO [Concomitant]
     Active Substance: ESCITALOPRAM OXALATE
     Indication: Product used for unknown indication
     Route: 048
  8. METOPROLOL [Concomitant]
     Active Substance: METOPROLOL
     Indication: Product used for unknown indication
     Route: 048
  9. ELIQUIS [Concomitant]
     Active Substance: APIXABAN
     Indication: Product used for unknown indication
     Route: 048
  10. LANCIPROL [Concomitant]
     Indication: Product used for unknown indication
     Route: 048
  11. PITAVASTATIN [Concomitant]
     Active Substance: PITAVASTATIN
     Indication: Product used for unknown indication
     Route: 048

REACTIONS (8)
  - Faeces discoloured [Recovered/Resolved]
  - Internal haemorrhage [Recovered/Resolved]
  - Transfusion [Recovered/Resolved]
  - Haematocrit decreased [Recovered/Resolved]
  - Gastric ulcer [Recovered/Resolved]
  - Hypotonia [Recovered/Resolved]
  - Balance disorder [Recovered/Resolved]
  - Gastric ulcer [Unknown]

NARRATIVE: CASE EVENT DATE: 20220412
